FAERS Safety Report 13578560 (Version 3)
Quarter: 2017Q3

REPORT INFORMATION
  Report Type: Report from Study
  Country: US (occurrence: US)
  Receive Date: 20170524
  Receipt Date: 20170808
  Transmission Date: 20171127
  Serious: Yes (Hospitalization, Other)
  Sender: FDA-Public Use
  Company Number: US-JAZZ-2017-US-006083

PATIENT
  Age: 71 Year
  Sex: Male

DRUGS (41)
  1. POTASSIUM GLUCONATE [Concomitant]
     Active Substance: POTASSIUM GLUCONATE
  2. FAMOTIDINE. [Concomitant]
     Active Substance: FAMOTIDINE
  3. LASIX [Concomitant]
     Active Substance: FUROSEMIDE
  4. XYREM [Suspect]
     Active Substance: SODIUM OXYBATE
     Dosage: DOSE ADJUSTMENTS
     Route: 048
     Dates: start: 201310, end: 2016
  5. XYREM [Suspect]
     Active Substance: SODIUM OXYBATE
     Dosage: 4.5 G, BID
     Route: 048
     Dates: start: 201704
  6. TRIAMTERENE AND HYDROCHLOROTHIAZIDE [Concomitant]
     Active Substance: HYDROCHLOROTHIAZIDE\TRIAMTERENE
  7. OMEPRAZOLE. [Concomitant]
     Active Substance: OMEPRAZOLE
  8. SAW PALMETTO                       /00833501/ [Concomitant]
     Active Substance: HERBALS\SAW PALMETTO
  9. TRAMADOL HCL [Concomitant]
     Active Substance: TRAMADOL HYDROCHLORIDE
  10. DOXYCYCLINE HYCLATE. [Concomitant]
     Active Substance: DOXYCYCLINE HYCLATE
  11. LYRICA [Concomitant]
     Active Substance: PREGABALIN
  12. TIZANIDINE HCL [Concomitant]
     Active Substance: TIZANIDINE HYDROCHLORIDE
  13. SYMBICORT [Concomitant]
     Active Substance: BUDESONIDE\FORMOTEROL FUMARATE DIHYDRATE
  14. GLUCOSAMINE SULFATE [Concomitant]
     Active Substance: GLUCOSAMINE SULFATE
  15. YEAST [Concomitant]
     Active Substance: YEAST
  16. THEOPHYLLINE [Concomitant]
     Active Substance: THEOPHYLLINE ANHYDROUS
  17. FISH OIL CONCENTRATE [Concomitant]
     Active Substance: FISH OIL
  18. QVAR [Concomitant]
     Active Substance: BECLOMETHASONE DIPROPIONATE
  19. MELOXICAM. [Concomitant]
     Active Substance: MELOXICAM
  20. SIMETHICONE (DIMETHICONE) [Concomitant]
     Active Substance: DIMETHICONE
  21. VITAMIN C [Concomitant]
     Active Substance: ASCORBIC ACID
  22. VITAMIN E                          /00110501/ [Concomitant]
     Active Substance: TOCOPHEROL
  23. METHYLPREDNISOLONE. [Concomitant]
     Active Substance: METHYLPREDNISOLONE
  24. NEXIUM [Concomitant]
     Active Substance: ESOMEPRAZOLE MAGNESIUM
  25. CENTRUM SILVER                     /02363801/ [Concomitant]
     Active Substance: MINERALS\VITAMINS
  26. CLONIDINE HCL [Concomitant]
     Active Substance: CLONIDINE HYDROCHLORIDE
  27. CLARITIN [Concomitant]
     Active Substance: LORATADINE
  28. CALCIUM CARBONATE. [Concomitant]
     Active Substance: CALCIUM CARBONATE
  29. PROVIGIL [Concomitant]
     Active Substance: MODAFINIL
  30. GUAIFENESIN. [Concomitant]
     Active Substance: GUAIFENESIN
  31. LOVASTATIN. [Concomitant]
     Active Substance: LOVASTATIN
  32. XYREM [Suspect]
     Active Substance: SODIUM OXYBATE
     Indication: NARCOLEPSY
     Dosage: 2.25 G, BID
     Route: 048
     Dates: start: 201310, end: 201310
  33. PROPRANOLOL [Concomitant]
     Active Substance: PROPRANOLOL HYDROCHLORIDE
  34. ASPIRIN                            /00002701/ [Concomitant]
     Active Substance: ASPIRIN
  35. LOSARTAN POTASSIUM. [Concomitant]
     Active Substance: LOSARTAN POTASSIUM
  36. AMLODIPINE BESYLATE. [Concomitant]
     Active Substance: AMLODIPINE BESYLATE
  37. NUVIGIL [Concomitant]
     Active Substance: ARMODAFINIL
  38. CALCITRIOL. [Concomitant]
     Active Substance: CALCITRIOL
  39. LEFLUNOMIDE. [Concomitant]
     Active Substance: LEFLUNOMIDE
  40. PREDNISONE. [Concomitant]
     Active Substance: PREDNISONE
  41. TAMSULOSIN HCL [Concomitant]
     Active Substance: TAMSULOSIN

REACTIONS (5)
  - Stress [Not Recovered/Not Resolved]
  - Blood potassium decreased [Unknown]
  - Weight decreased [Not Recovered/Not Resolved]
  - Hallucination [Unknown]
  - Cholelithiasis [Recovered/Resolved]

NARRATIVE: CASE EVENT DATE: 201705
